FAERS Safety Report 19828679 (Version 1)
Quarter: 2021Q3

REPORT INFORMATION
  Report Type: Report from Study
  Country: JP (occurrence: JP)
  Receive Date: 20210914
  Receipt Date: 20210914
  Transmission Date: 20211014
  Serious: Yes (Hospitalization)
  Sender: FDA-Public Use
  Company Number: JP-EMD SERONO-9245184

PATIENT
  Age: 71 Year
  Sex: Male
  Weight: 55 kg

DRUGS (17)
  1. INLYTA [Suspect]
     Active Substance: AXITINIB
     Indication: METASTATIC RENAL CELL CARCINOMA
     Route: 048
     Dates: start: 20210318
  2. INLYTA [Suspect]
     Active Substance: AXITINIB
     Route: 048
     Dates: end: 20210617
  3. ACETAMINOPHEN. [Concomitant]
     Active Substance: ACETAMINOPHEN
     Route: 048
     Dates: start: 20210401, end: 20210401
  4. DIPHENHYDRAMINE. [Concomitant]
     Active Substance: DIPHENHYDRAMINE
     Indication: PREMEDICATION
     Route: 048
     Dates: start: 20210318, end: 20210318
  5. DIPHENHYDRAMINE. [Concomitant]
     Active Substance: DIPHENHYDRAMINE
     Route: 048
     Dates: start: 20210415, end: 20210415
  6. ACETAMINOPHEN. [Concomitant]
     Active Substance: ACETAMINOPHEN
     Route: 048
     Dates: start: 20210430, end: 20210430
  7. ACETAMINOPHEN. [Concomitant]
     Active Substance: ACETAMINOPHEN
     Route: 048
     Dates: start: 20210415, end: 20210415
  8. BAVENCIO [Suspect]
     Active Substance: AVELUMAB
     Indication: METASTATIC RENAL CELL CARCINOMA
     Dosage: ADMINISTRATION RATE: 100 ML/HR.
     Route: 041
     Dates: start: 20210318, end: 20210318
  9. BAVENCIO [Suspect]
     Active Substance: AVELUMAB
     Dosage: ADMINISTRATION RATE: 100 ML/HR.
     Route: 041
     Dates: start: 20210415, end: 20210415
  10. BAVENCIO [Suspect]
     Active Substance: AVELUMAB
     Dosage: ADMINISTRATION RATE: 100 ML/HR.
     Route: 041
     Dates: start: 20210430, end: 20210430
  11. BAVENCIO [Suspect]
     Active Substance: AVELUMAB
     Dosage: ADMINISTRATION RATE: 100 ML/HR.
     Route: 041
     Dates: start: 20210514, end: 20210514
  12. DIPHENHYDRAMINE. [Concomitant]
     Active Substance: DIPHENHYDRAMINE
     Route: 048
     Dates: start: 20210430, end: 20210430
  13. DIPHENHYDRAMINE. [Concomitant]
     Active Substance: DIPHENHYDRAMINE
     Route: 048
     Dates: start: 20210514, end: 20210514
  14. ACETAMINOPHEN. [Concomitant]
     Active Substance: ACETAMINOPHEN
     Indication: PREMEDICATION
     Route: 048
     Dates: start: 20210318, end: 20210318
  15. BAVENCIO [Suspect]
     Active Substance: AVELUMAB
     Dosage: ADMINISTRATION RATE: 100 ML/HR.
     Route: 041
     Dates: start: 20210401, end: 20210401
  16. ACETAMINOPHEN. [Concomitant]
     Active Substance: ACETAMINOPHEN
     Route: 048
     Dates: start: 20210514, end: 20210514
  17. DIPHENHYDRAMINE. [Concomitant]
     Active Substance: DIPHENHYDRAMINE
     Route: 048
     Dates: start: 20210401, end: 20210401

REACTIONS (2)
  - Aortic dissection [Not Recovered/Not Resolved]
  - Hypothyroidism [Recovered/Resolved]

NARRATIVE: CASE EVENT DATE: 20210603
